FAERS Safety Report 19070923 (Version 1)
Quarter: 2021Q1

REPORT INFORMATION
  Report Type: Spontaneous
  Country: CN (occurrence: CN)
  Receive Date: 20210330
  Receipt Date: 20210330
  Transmission Date: 20210420
  Serious: Yes (Other)
  Sender: FDA-Public Use
  Company Number: CN-CIPLA LTD.-2021CN02265

PATIENT

DRUGS (3)
  1. LAMIVUDINE. [Suspect]
     Active Substance: LAMIVUDINE
     Indication: CHRONIC HEPATITIS B
     Dosage: UNK, }2 YEARS
     Route: 065
  2. LAMIVUDINE. [Suspect]
     Active Substance: LAMIVUDINE
     Dosage: 100 MILLIGRAM PER DAY }8 MONTHS
     Route: 048
  3. ADEFOVIR [Suspect]
     Active Substance: ADEFOVIR
     Indication: CHRONIC HEPATITIS B
     Dosage: 10 MILLIGRAM PER DAY, }8 MONTHS
     Route: 048

REACTIONS (2)
  - Hepatitis B DNA increased [Recovered/Resolved]
  - Drug resistance [Unknown]
